FAERS Safety Report 19159293 (Version 1)
Quarter: 2021Q2

REPORT INFORMATION
  Report Type: Spontaneous
  Country: US (occurrence: US)
  Receive Date: 20210420
  Receipt Date: 20210420
  Transmission Date: 20210717
  Serious: No
  Sender: FDA-Public Use
  Company Number: US-PFIZER INC-2021348932

PATIENT
  Age: 56 Year
  Sex: Female
  Weight: 61.22 kg

DRUGS (1)
  1. IBRANCE [Suspect]
     Active Substance: PALBOCICLIB
     Indication: BREAST CANCER
     Dosage: 125 MG 1 DAILY FOR 21 DAYS
     Route: 048
     Dates: start: 202102

REACTIONS (3)
  - Dizziness [Unknown]
  - Anxiety [Unknown]
  - Constipation [Unknown]
